FAERS Safety Report 18534681 (Version 6)
Quarter: 2021Q4

REPORT INFORMATION
  Report Type: Spontaneous
  Country: US (occurrence: US)
  Receive Date: 20201123
  Receipt Date: 20211119
  Transmission Date: 20220303
  Serious: Yes (Hospitalization, Other)
  Sender: FDA-Public Use
  Company Number: US-PFIZER INC-2019392355

PATIENT
  Age: 70 Year
  Sex: Female
  Weight: 73.016 kg

DRUGS (2)
  1. LYRICA [Suspect]
     Active Substance: PREGABALIN
     Indication: Diabetic neuropathy
     Dosage: 150 MG, THREE TIMES DAILY
     Dates: start: 2018
  2. LYRICA [Suspect]
     Active Substance: PREGABALIN
     Indication: Pain

REACTIONS (8)
  - Large intestinal ulcer haemorrhage [Unknown]
  - Blindness [Unknown]
  - Product dose omission issue [Unknown]
  - Intentional dose omission [Unknown]
  - Pain in extremity [Not Recovered/Not Resolved]
  - Gait disturbance [Unknown]
  - Insomnia [Unknown]
  - Hypoaesthesia [Unknown]
